FAERS Safety Report 5814711-4 (Version None)
Quarter: 2008Q3

REPORT INFORMATION
  Report Type: 
  Country: None (occurrence: None)
  Receive Date: 20080718
  Receipt Date: 20080509
  Transmission Date: 20090109
  Serious: No
  Sender: FDA-Public Use
  Company Number: US-KINGPHARMUSA00001-K200800532

PATIENT

DRUGS (6)
  1. LEVOXYL [Suspect]
     Indication: HYPOTHYROIDISM
     Dates: start: 20040101
  2. MENEST [Suspect]
  3. CYTOMEL [Suspect]
     Indication: HYPOTHYROIDISM
     Dosage: 50 MCG, QD
     Route: 048
  4. CYTOMEL [Suspect]
     Dosage: 50 MCG, QD
     Route: 048
  5. GINSENG                            /00480901/ [Concomitant]
  6. GREEN [Concomitant]
     Dosage: UNK, UNK

REACTIONS (2)
  - BLOOD TEST ABNORMAL [None]
  - WEIGHT INCREASED [None]
